FAERS Safety Report 7296642-9 (Version None)
Quarter: 2011Q1

REPORT INFORMATION
  Report Type: 
  Country: None (occurrence: None)
  Receive Date: 20110216
  Receipt Date: 20110210
  Transmission Date: 20110831
  Serious: Yes (Death, Hospitalization, Disabling, Other)
  Sender: FDA-Public Use
  Company Number: PHEH2010US01830

PATIENT
  Sex: Male

DRUGS (1)
  1. GLEEVEC [Suspect]
     Indication: GASTRIC CANCER
     Dosage: 400 MG, DAILY
     Route: 048
     Dates: start: 20100816

REACTIONS (6)
  - NEOPLASM MALIGNANT [None]
  - CONCOMITANT DISEASE AGGRAVATED [None]
  - DEATH [None]
  - POST PROCEDURAL COMPLICATION [None]
  - THYROID CANCER [None]
  - PULMONARY EMBOLISM [None]
